FAERS Safety Report 21684212 (Version 1)
Quarter: 2022Q4

REPORT INFORMATION
  Report Type: Spontaneous
  Country: US (occurrence: None)
  Receive Date: 20221204
  Receipt Date: 20221204
  Transmission Date: 20230113
  Serious: Yes (Hospitalization)
  Sender: FDA-Public Use
  Company Number: None

PATIENT
  Sex: Male

DRUGS (3)
  1. PULMOZYME [Suspect]
     Active Substance: DORNASE ALFA
     Indication: Cystic fibrosis
     Dosage: 2.5MG/2.5ML  INHALATION??INHALE 2.5 ML VIA NEBULIZER DAILY ? ?
     Route: 050
     Dates: start: 20210626
  2. PULMOZYME [Suspect]
     Active Substance: DORNASE ALFA
     Dosage: FREQUENCY : DAILY;?OTHER ROUTE : NEBULIZER;?
     Route: 050
  3. DEKAS ESSENTIAL LIQUID [Concomitant]

REACTIONS (3)
  - Infection [None]
  - Influenza [None]
  - Condition aggravated [None]
